FAERS Safety Report 24243939 (Version 1)
Quarter: 2024Q3

REPORT INFORMATION
  Report Type: Spontaneous
  Country: US (occurrence: None)
  Receive Date: 20240822
  Receipt Date: 20240822
  Transmission Date: 20241017
  Serious: No
  Sender: Public
  Company Number: None

PATIENT
  Age: 63 Year
  Sex: Male

DRUGS (1)
  1. GLIPIZIDE [Suspect]
     Active Substance: GLIPIZIDE

REACTIONS (6)
  - Pyrexia [None]
  - Deprescribing error [None]
  - Product prescribing issue [None]
  - Dyspnoea [None]
  - Inappropriate schedule of product administration [None]
  - Incorrect dose administered [None]
